FAERS Safety Report 18983456 (Version 1)
Quarter: 2021Q1

REPORT INFORMATION
  Report Type: Spontaneous
  Country: FR (occurrence: FR)
  Receive Date: 20210309
  Receipt Date: 20210309
  Transmission Date: 20210420
  Serious: Yes (Hospitalization, Other)
  Sender: FDA-Public Use
  Company Number: FR-AUROBINDO-AUR-APL-2021-009173

PATIENT
  Age: 32 Year
  Sex: Female
  Weight: 58 kg

DRUGS (1)
  1. METFORMIN [Suspect]
     Active Substance: METFORMIN HYDROCHLORIDE
     Indication: TYPE 2 DIABETES MELLITUS
     Dosage: 1500 MILLIGRAM, ONCE A DAY
     Route: 048
     Dates: start: 2020, end: 20210114

REACTIONS (1)
  - Epileptic encephalopathy [Recovered/Resolved]

NARRATIVE: CASE EVENT DATE: 20201230
